FAERS Safety Report 6114323-1 (Version None)
Quarter: 2009Q1

REPORT INFORMATION
  Report Type: 
  Country: None (occurrence: None)
  Receive Date: 20090312
  Receipt Date: 20090122
  Transmission Date: 20090719
  Serious: Yes (Life-Threatening, Hospitalization)
  Sender: FDA-Public Use
  Company Number: US-ABBOTT-09P-163-0499370-00

PATIENT
  Sex: Male
  Weight: 77.18 kg

DRUGS (4)
  1. DEPAKOTE [Suspect]
     Indication: BIPOLAR DISORDER
  2. DEPAKOTE [Suspect]
     Indication: MANIA
  3. SEROQUEL [Concomitant]
     Indication: DRUG USE FOR UNKNOWN INDICATION
  4. ATIVAN [Concomitant]
     Indication: DRUG USE FOR UNKNOWN INDICATION

REACTIONS (9)
  - DELIRIUM [None]
  - DRUG HYPERSENSITIVITY [None]
  - EYE SWELLING [None]
  - HEPATIC FUNCTION ABNORMAL [None]
  - LOCAL SWELLING [None]
  - LYMPHADENOPATHY [None]
  - PYREXIA [None]
  - RASH [None]
  - SWELLING FACE [None]
